FAERS Safety Report 6593580-1 (Version None)
Quarter: 2010Q1

REPORT INFORMATION
  Report Type: 
  Country: None (occurrence: None)
  Receive Date: 20100222
  Receipt Date: 20090818
  Transmission Date: 20100710
  Serious: No
  Sender: FDA-Public Use
  Company Number: US-BRISTOL-MYERS SQUIBB COMPANY-14736482

PATIENT
  Age: 54 Year
  Sex: Female
  Weight: 118 kg

DRUGS (4)
  1. ORENCIA [Suspect]
     Indication: RHEUMATOID ARTHRITIS
     Route: 042
     Dates: start: 20090807
  2. PREDNISONE [Concomitant]
  3. SYNTHROID [Concomitant]
  4. METFORMIN [Concomitant]

REACTIONS (1)
  - HYPOGLYCAEMIA [None]
